FAERS Safety Report 8116454-3 (Version None)
Quarter: 2011Q4

REPORT INFORMATION
  Report Type: 
  Country: None (occurrence: None)
  Receive Date: 20111227
  Receipt Date: 20111012
  Transmission Date: 20120403
  Serious: No
  Sender: FDA-Public Use
  Company Number: PHEH2011US03336

PATIENT
  Age: 37 Year
  Sex: Female
  Weight: 92.1 kg

DRUGS (4)
  1. LEVOTHYROXINE SODIUM [Concomitant]
  2. MULTIVITAMINS (ASCORBIC ACID, ERGOCALCIFEROL, FOLIC ACID, NICOTINAMIDE [Concomitant]
  3. GILENYA [Suspect]
     Indication: RELAPSING-REMITTING MULTIPLE SCLEROSIS
     Dosage: 0.5 MG, QD, ORAL
     Route: 048
     Dates: start: 20110816
  4. VITAMIN D [Concomitant]

REACTIONS (4)
  - CHEST PAIN [None]
  - DEPRESSED MOOD [None]
  - FLATULENCE [None]
  - DYSPEPSIA [None]
